FAERS Safety Report 17791433 (Version 1)
Quarter: 2020Q2

REPORT INFORMATION
  Report Type: Spontaneous
  Country: US (occurrence: US)
  Receive Date: 20200515
  Receipt Date: 20200515
  Transmission Date: 20200714
  Serious: No
  Sender: FDA-Public Use
  Company Number: None

PATIENT
  Age: 76 Year
  Sex: Female
  Weight: 79.45 kg

DRUGS (3)
  1. HERCEPTIN [Suspect]
     Active Substance: TRASTUZUMAB
     Dates: end: 20111109
  2. TAXOTERE [Suspect]
     Active Substance: DOCETAXEL
     Dates: end: 20110216
  3. CARBOPLATIN. [Suspect]
     Active Substance: CARBOPLATIN
     Dates: end: 20111109

REACTIONS (3)
  - Fatigue [None]
  - Weight decreased [None]
  - Nephrectomy [None]

NARRATIVE: CASE EVENT DATE: 20171003
